FAERS Safety Report 17761981 (Version 1)
Quarter: 2020Q2

REPORT INFORMATION
  Report Type: Spontaneous
  Country: US (occurrence: US)
  Receive Date: 20200508
  Receipt Date: 20200508
  Transmission Date: 20200714
  Serious: Yes (Other)
  Sender: FDA-Public Use
  Company Number: US-JNJFOC-20200504903

PATIENT
  Sex: Female

DRUGS (3)
  1. RIVAROXABAN [Suspect]
     Active Substance: RIVAROXABAN
     Indication: PRODUCT USED FOR UNKNOWN INDICATION
     Route: 048
  2. LENVIMA [Concomitant]
     Active Substance: LENVATINIB
     Route: 048
     Dates: start: 20200404
  3. LENVIMA [Concomitant]
     Active Substance: LENVATINIB
     Indication: ENDOMETRIAL CANCER
     Route: 048
     Dates: start: 20200227, end: 20200327

REACTIONS (9)
  - Weight decreased [Not Recovered/Not Resolved]
  - Headache [Recovering/Resolving]
  - Tumour marker increased [Not Recovered/Not Resolved]
  - Cough [Recovering/Resolving]
  - Fatigue [Recovering/Resolving]
  - Dysmenorrhoea [Not Recovered/Not Resolved]
  - Constipation [Recovering/Resolving]
  - Vaginal haemorrhage [Recovering/Resolving]
  - Hypertension [Not Recovered/Not Resolved]
